FAERS Safety Report 15652216 (Version 3)
Quarter: 2019Q1

REPORT INFORMATION
  Report Type: Report from Study
  Country: None (occurrence: FR)
  Receive Date: 20181123
  Receipt Date: 20190104
  Transmission Date: 20190417
  Serious: Yes (Death, Hospitalization, Other)
  Sender: FDA-Public Use
  Company Number: FR-ABBVIE-18S-056-2566266-00

PATIENT
  Age: 79 Year
  Sex: Male

DRUGS (1)
  1. DUODOPA [Suspect]
     Active Substance: CARBIDOPA\LEVODOPA
     Indication: PARKINSON^S DISEASE
     Route: 050
     Dates: start: 20151127

REACTIONS (5)
  - Urinary tract infection [Not Recovered/Not Resolved]
  - Parkinsonism [Fatal]
  - Weight decreased [Not Recovered/Not Resolved]
  - Multiple organ dysfunction syndrome [Fatal]
  - Altered state of consciousness [Not Recovered/Not Resolved]

NARRATIVE: CASE EVENT DATE: 20181118
